FAERS Safety Report 6497109-8 (Version None)
Quarter: 2009Q4

REPORT INFORMATION
  Report Type: 
  Country: None (occurrence: None)
  Receive Date: 20091215
  Receipt Date: 20090317
  Transmission Date: 20100525
  Serious: No
  Sender: FDA-Public Use
  Company Number: A0773821A

PATIENT
  Age: 65 Year
  Sex: Female

DRUGS (3)
  1. AVODART [Suspect]
     Dosage: .5MG PER DAY
     Route: 050
     Dates: start: 20080501
  2. METOPROLOL [Concomitant]
  3. PRILOSEC [Concomitant]

REACTIONS (1)
  - LIBIDO DECREASED [None]
